FAERS Safety Report 18146546 (Version 1)
Quarter: 2020Q3

REPORT INFORMATION
  Report Type: Spontaneous
  Country: ES (occurrence: ES)
  Receive Date: 20200813
  Receipt Date: 20200813
  Transmission Date: 20201103
  Serious: Yes (Other)
  Sender: FDA-Public Use
  Company Number: ES-MACLEODS PHARMACEUTICALS US LTD-MAC2020027644

PATIENT

DRUGS (1)
  1. TRIAMCINOLONE ACETONIDE. [Suspect]
     Active Substance: TRIAMCINOLONE ACETONIDE
     Indication: DIABETIC RETINAL OEDEMA
     Dosage: UNK, 2.52 (0.63) MG OF TRIAMCINOLONE ACETONIDE IN 0.1 ML INJECTION

REACTIONS (2)
  - Reaction to preservatives [Recovered/Resolved]
  - Non-infectious endophthalmitis [Recovered/Resolved]
